FAERS Safety Report 9198383 (Version 1)
Quarter: 2013Q1

REPORT INFORMATION
  Report Type: Spontaneous
  Country: US (occurrence: None)
  Receive Date: 20130327
  Receipt Date: 20130327
  Transmission Date: 20140127
  Serious: Yes (Disabling, Other)
  Sender: FDA-Public Use
  Company Number: None

PATIENT
  Age: 55 Year
  Sex: Female
  Weight: 62.14 kg

DRUGS (1)
  1. NEOMYCIN AND POLYMYXIN B SULFATES AND HYDROCORTISONE [Suspect]
     Dosage: 4 DROPS 2-3 TIMES FOR 1 WEEK.
     Dates: start: 20130226

REACTIONS (7)
  - Ear pain [None]
  - Deafness unilateral [None]
  - Dizziness [None]
  - Hearing impaired [None]
  - Vertigo [None]
  - Pruritus [None]
  - Oropharyngeal pain [None]
